FAERS Safety Report 4957072-5 (Version None)
Quarter: 2006Q1

REPORT INFORMATION
  Report Type: 
  Country: None (occurrence: None)
  Receive Date: 20060323
  Receipt Date: 20060313
  Transmission Date: 20060701
  Serious: Yes (Other)
  Sender: FDA-Public Use
  Company Number: 2006030065

PATIENT
  Sex: Female
  Weight: 63.5036 kg

DRUGS (9)
  1. LIPITOR [Suspect]
     Indication: BLOOD CHOLESTEROL
     Dosage: 10 (10 MG, 1 IN 1 D) ORAL
     Route: 048
  2. LEVOXYL [Concomitant]
  3. VERAPAMIL -                     SLOW RELEASE (VERAPAMIL HYDROCHLORIDE) [Concomitant]
  4. CALTRATE            (CALCIUM CARBONATE) [Concomitant]
  5. ACETYLSALICYLIC ACID SRT [Concomitant]
  6. LANOXIN [Concomitant]
  7. HYZAAR [Concomitant]
  8. CENTRUM SILVER [Concomitant]
  9. LOTEMAX [Concomitant]

REACTIONS (5)
  - CORNEAL THINNING [None]
  - CORNEAL TRANSPLANT [None]
  - DRY EYE [None]
  - HEART RATE IRREGULAR [None]
  - VISUAL ACUITY REDUCED [None]
